FAERS Safety Report 4515495-2 (Version None)
Quarter: 2004Q4

REPORT INFORMATION
  Report Type: 
  Country: None (occurrence: None)
  Receive Date: 20041126
  Receipt Date: 20041108
  Transmission Date: 20050328
  Serious: Yes (Life-Threatening, Hospitalization)
  Sender: FDA-Public Use
  Company Number: ATO-04-0918

PATIENT
  Age: 81 Year
  Sex: Female
  Weight: 69.4003 kg

DRUGS (11)
  1. TRISENOX [Suspect]
     Indication: MYELODYSPLASTIC SYNDROME
     Dosage: 0.25 MG/KG, DAILY, IVI
     Dates: start: 20041102, end: 20041104
  2. THALOMID [Suspect]
     Indication: MYELODYSPLASTIC SYNDROME
     Dosage: 100 MG (100 MG, DAILY), ORAL
     Route: 048
     Dates: start: 20041102, end: 20041103
  3. COUMADIN [Concomitant]
  4. NITRO [Concomitant]
  5. ASPIRIN [Concomitant]
  6. HYDROXYCODONE [Concomitant]
  7. XANAX [Concomitant]
  8. MAXZIDE [Concomitant]
  9. PAXL [Concomitant]
  10. NIFEREX FORTE [Concomitant]
  11. AMBIEN [Concomitant]

REACTIONS (5)
  - DISEASE RECURRENCE [None]
  - INTERNATIONAL NORMALISED RATIO DECREASED [None]
  - MYOCARDIAL ISCHAEMIA [None]
  - PULMONARY EMBOLISM [None]
  - THERAPEUTIC RESPONSE DECREASED [None]
